FAERS Safety Report 18950619 (Version 3)
Quarter: 2022Q1

REPORT INFORMATION
  Report Type: Spontaneous
  Country: US (occurrence: None)
  Receive Date: 20210228
  Receipt Date: 20220316
  Transmission Date: 20220424
  Serious: No
  Sender: FDA-Public Use
  Company Number: US-ROCHE-2678223

PATIENT
  Age: 68 Year
  Sex: Male
  Weight: 98.972 kg

DRUGS (8)
  1. XOLAIR [Suspect]
     Active Substance: OMALIZUMAB
     Indication: Idiopathic urticaria
     Dosage: 150 MG/ML
     Route: 058
     Dates: start: 20200122, end: 20200924
  2. XOLAIR [Suspect]
     Active Substance: OMALIZUMAB
  3. XOLAIR [Suspect]
     Active Substance: OMALIZUMAB
  4. XOLAIR [Suspect]
     Active Substance: OMALIZUMAB
     Route: 030
     Dates: start: 20200122, end: 20200924
  5. XOLAIR [Suspect]
     Active Substance: OMALIZUMAB
  6. XOLAIR [Suspect]
     Active Substance: OMALIZUMAB
  7. ZYRTEC [Concomitant]
     Active Substance: CETIRIZINE HYDROCHLORIDE
  8. SINGULAIR [Concomitant]
     Active Substance: MONTELUKAST SODIUM

REACTIONS (7)
  - Drug ineffective [Unknown]
  - Myalgia [Not Recovered/Not Resolved]
  - Arthralgia [Not Recovered/Not Resolved]
  - Ear pain [Not Recovered/Not Resolved]
  - Headache [Not Recovered/Not Resolved]
  - Oropharyngeal pain [Not Recovered/Not Resolved]
  - Product quality issue [Unknown]

NARRATIVE: CASE EVENT DATE: 20200324
